FAERS Safety Report 4516272-9 (Version None)
Quarter: 2004Q4

REPORT INFORMATION
  Report Type: 
  Country: None (occurrence: None)
  Receive Date: 20041129
  Receipt Date: 20041115
  Transmission Date: 20050328
  Serious: Yes (Death, Hospitalization)
  Sender: FDA-Public Use
  Company Number: WAES 0310GBR00110

PATIENT
  Age: 73 Year
  Sex: Male

DRUGS (5)
  1. VIOXX [Suspect]
     Indication: NEOPLASM PROPHYLAXIS
     Dosage: 25 MG/DAILY
     Route: 048
     Dates: start: 20030819, end: 20030910
  2. ASPIRIN [Suspect]
     Indication: MYOCARDIAL INFARCTION
     Dosage: 75 MG
     Route: 048
     Dates: start: 20030613
  3. ATENOLOL [Concomitant]
  4. RAMIPRIL [Concomitant]
  5. SIMVASTATIN [Concomitant]

REACTIONS (5)
  - HYPOTENSION [None]
  - LEIOMYOMA [None]
  - MULTI-ORGAN FAILURE [None]
  - TRANSFUSION REACTION [None]
  - UPPER GASTROINTESTINAL HAEMORRHAGE [None]
